FAERS Safety Report 23976873 (Version 1)
Quarter: 2024Q2

REPORT INFORMATION
  Report Type: Spontaneous
  Country: US (occurrence: None)
  Receive Date: 20240613
  Receipt Date: 20240613
  Transmission Date: 20240716
  Serious: Yes (Hospitalization)
  Sender: FDA-Public Use
  Company Number: None

PATIENT
  Sex: Female

DRUGS (1)
  1. KISQALI [Suspect]
     Active Substance: RIBOCICLIB
     Indication: Breast cancer
     Dosage: OTHER FREQUENCY : 1 DA-21DA-21D CYCL;?
     Route: 048
     Dates: start: 202312

REACTIONS (4)
  - Gastritis [None]
  - Dyspepsia [None]
  - Tissue injury [None]
  - Incontinence [None]
